FAERS Safety Report 18814667 (Version 1)
Quarter: 2021Q1

REPORT INFORMATION
  Report Type: Spontaneous
  Country: IN (occurrence: IN)
  Receive Date: 20210201
  Receipt Date: 20210201
  Transmission Date: 20210419
  Serious: Yes (Other)
  Sender: FDA-Public Use
  Company Number: IN-ACCORD-216121

PATIENT
  Age: 68 Year
  Sex: Female

DRUGS (3)
  1. AMANTADINE. [Concomitant]
     Active Substance: AMANTADINE HYDROCHLORIDE
     Indication: PARKINSON^S DISEASE
  2. PRAMIPEXOLE/PRAMIPEXOLE DIHYDROCHLORIDE [Concomitant]
     Active Substance: PRAMIPEXOLE DIHYDROCHLORIDE
     Indication: PARKINSON^S DISEASE
  3. CARBIDOPA/LEVODOPA [Suspect]
     Active Substance: CARBIDOPA\LEVODOPA
     Indication: PARKINSON^S DISEASE
     Dosage: 125 MG LD/CD TABLETS, 9 DOSAGE FORM 2.5 YEARS

REACTIONS (13)
  - Dystonia [Unknown]
  - Drug dependence [Unknown]
  - Psychotic disorder [Unknown]
  - Compulsive hoarding [Unknown]
  - Intentional product misuse [Unknown]
  - Intentional product use issue [Unknown]
  - Autonomic nervous system imbalance [Unknown]
  - Euphoric mood [Unknown]
  - Aggression [Unknown]
  - Hallucination [Unknown]
  - Impulse-control disorder [Unknown]
  - Stereotypy [Unknown]
  - Dopamine dysregulation syndrome [Unknown]
